FAERS Safety Report 6940639-2 (Version None)
Quarter: 2010Q3

REPORT INFORMATION
  Report Type: 
  Country: None (occurrence: None)
  Receive Date: 20100825
  Receipt Date: 20100819
  Transmission Date: 20110219
  Serious: Yes (Other)
  Sender: FDA-Public Use
  Company Number: US-SANOFI-AVENTIS-2010SA044600

PATIENT
  Sex: Male

DRUGS (2)
  1. SOLOSTAR [Suspect]
     Indication: TYPE 1 DIABETES MELLITUS
  2. LANTUS [Suspect]
     Indication: TYPE 1 DIABETES MELLITUS
     Route: 058

REACTIONS (2)
  - BLOOD GLUCOSE INCREASED [None]
  - DEVICE MALFUNCTION [None]
